APPROVED DRUG PRODUCT: DAKLINZA
Active Ingredient: DACLATASVIR DIHYDROCHLORIDE
Strength: EQ 90MG BASE
Dosage Form/Route: TABLET;ORAL
Application: N206843 | Product #003
Applicant: BRISTOL-MYERS SQUIBB CO
Approved: Apr 13, 2016 | RLD: Yes | RS: No | Type: DISCN

PATENTS:
Patent 9421192 | Expires: Aug 8, 2027
Patent 9421192 | Expires: Aug 8, 2027